FAERS Safety Report 7623654-5 (Version None)
Quarter: 2011Q3

REPORT INFORMATION
  Report Type: 
  Country: None (occurrence: None)
  Receive Date: 20110720
  Receipt Date: 20110705
  Transmission Date: 20111222
  Serious: Yes (Other)
  Sender: FDA-Public Use
  Company Number: TR-WATSON-2011-10639

PATIENT
  Age: 46 Year
  Sex: Male

DRUGS (1)
  1. CYCLOSPORINE [Suspect]
     Indication: PROPHYLAXIS AGAINST TRANSPLANT REJECTION
     Dosage: 125 MG, DAILY
     Route: 065

REACTIONS (2)
  - HYPOREFLEXIA [None]
  - POLYNEUROPATHY [None]
